FAERS Safety Report 10707173 (Version 2)
Quarter: 2022Q3

REPORT INFORMATION
  Report Type: Spontaneous
  Country: US (occurrence: US)
  Receive Date: 20150113
  Receipt Date: 20220821
  Transmission Date: 20221027
  Serious: Yes (Hospitalization)
  Sender: FDA-Public Use
  Company Number: US-GLAXOSMITHKLINE-US2014GSK044660

PATIENT
  Sex: Female

DRUGS (6)
  1. ADVAIR DISKUS [Suspect]
     Active Substance: FLUTICASONE PROPIONATE\SALMETEROL XINAFOATE
     Indication: Chronic obstructive pulmonary disease
     Dosage: UNK, VA
     Route: 055
     Dates: start: 2009
  2. LOSARTAN [Concomitant]
     Active Substance: LOSARTAN
  3. DEXILANT [Concomitant]
     Active Substance: DEXLANSOPRAZOLE
  4. COMBIVENT [Concomitant]
     Active Substance: ALBUTEROL SULFATE\IPRATROPIUM BROMIDE
  5. DEVICE [Concomitant]
     Active Substance: DEVICE
  6. LIPITOR [Concomitant]
     Active Substance: ATORVASTATIN CALCIUM

REACTIONS (2)
  - Bronchial disorder [Unknown]
  - Underdose [Unknown]

NARRATIVE: CASE EVENT DATE: 20140101
